FAERS Safety Report 6577005-8 (Version None)
Quarter: 2010Q1

REPORT INFORMATION
  Report Type: 
  Country: None (occurrence: None)
  Receive Date: 20100210
  Receipt Date: 20100201
  Transmission Date: 20100710
  Serious: Yes (Life-Threatening, Hospitalization)
  Sender: FDA-Public Use
  Company Number: GXKR2010HK01385

PATIENT
  Age: 89 Year
  Sex: Male

DRUGS (4)
  1. PARACETAMOL [Concomitant]
     Route: 048
  2. METHYLDOPA (NGX) [Suspect]
     Route: 048
  3. THEOPHYLLINE (NGX) [Interacting]
     Route: 048
  4. INDAPAMIDE (NGX) [Interacting]
     Route: 065

REACTIONS (10)
  - COMA [None]
  - DRUG INTERACTION [None]
  - ENDOTRACHEAL INTUBATION [None]
  - HYPOKALAEMIA [None]
  - HYPOTENSION [None]
  - MULTIPLE DRUG OVERDOSE [None]
  - POLYURIA [None]
  - SINUS TACHYCARDIA [None]
  - SOMNOLENCE [None]
  - VOMITING [None]
